FAERS Safety Report 7392496-0 (Version None)
Quarter: 2011Q2

REPORT INFORMATION
  Report Type: 
  Country: None (occurrence: None)
  Receive Date: 20110404
  Receipt Date: 20110322
  Transmission Date: 20111010
  Serious: Yes (Hospitalization)
  Sender: FDA-Public Use
  Company Number: DE-ELI_LILLY_AND_COMPANY-DE201103006064

PATIENT
  Sex: Female

DRUGS (5)
  1. FORTEO [Suspect]
     Indication: OSTEOPOROSIS
     Dosage: UNK, QD
     Route: 058
     Dates: start: 20100901
  2. VITAMIN D [Concomitant]
  3. CALCIUM [Concomitant]
  4. CORTISONE [Concomitant]
     Dosage: 5 MG, UNK
  5. MORPHINE [Concomitant]

REACTIONS (6)
  - CYST [None]
  - BONE PAIN [None]
  - INJECTION SITE PAIN [None]
  - BACK PAIN [None]
  - INTERVERTEBRAL DISC PROTRUSION [None]
  - GROIN PAIN [None]
